FAERS Safety Report 24468344 (Version 1)
Quarter: 2024Q4

REPORT INFORMATION
  Report Type: Report from Study
  Country: DE (occurrence: DE)
  Receive Date: 20241018
  Receipt Date: 20241018
  Transmission Date: 20250115
  Serious: Yes (Hospitalization, Other)
  Sender: RANBAXY
  Company Number: DE-SUN PHARMACEUTICAL INDUSTRIES LTD-2024RR-465576

PATIENT
  Age: 80 Year
  Sex: Male
  Weight: 74 kg

DRUGS (9)
  1. SONIDEGIB [Suspect]
     Active Substance: SONIDEGIB
     Indication: Basal cell carcinoma
     Dosage: 200 MILLIGRAM, DAILY
     Route: 048
     Dates: start: 20211120, end: 20240821
  2. METOPROLOL SUCCINATE [Concomitant]
     Active Substance: METOPROLOL SUCCINATE
     Indication: Pre-existing disease
     Dosage: 95 MILLIGRAM, DAILY
     Route: 048
  3. VIACORIND [Concomitant]
     Indication: Pre-existing disease
     Dosage: 1 APPLICATION
     Route: 048
  4. AMLODIPINE BESYLATE\PERINDOPRIL ARGININE [Concomitant]
     Active Substance: AMLODIPINE BESYLATE\PERINDOPRIL ARGININE
     Indication: Pre-existing disease
     Dosage: 1 APPLICATION
     Route: 048
  5. Omnimed Lutein Plus eye drops [Concomitant]
     Indication: Pre-existing disease
     Dosage: 1 APPLICATION
     Route: 031
  6. LATANOPROST [Concomitant]
     Active Substance: LATANOPROST
     Indication: Pre-existing disease
     Dosage: 1 APPLICATION
     Route: 031
  7. ZYTIGA [Concomitant]
     Active Substance: ABIRATERONE ACETATE
     Indication: Pre-existing disease
     Dosage: 1000 MILLIGRAM, DAILY
     Route: 048
  8. PREDNISOLONE [Concomitant]
     Active Substance: PREDNISOLONE
     Indication: Pre-existing disease
     Dosage: 5 MILLIGRAM, BID
     Route: 048
  9. Trenantone/ Pamorelin [Concomitant]
     Indication: Pre-existing disease
     Dosage: 1 APPLICATION
     Route: 058

REACTIONS (2)
  - Squamous cell carcinoma [Not Recovered/Not Resolved]
  - Scleroderma [Recovered/Resolved]

NARRATIVE: CASE EVENT DATE: 20240813
